FAERS Safety Report 12791542 (Version 1)
Quarter: 2016Q3

REPORT INFORMATION
  Report Type: Spontaneous
  Country: US (occurrence: US)
  Receive Date: 20160928
  Receipt Date: 20160928
  Transmission Date: 20161109
  Serious: Yes (Hospitalization, Disabling)
  Sender: FDA-Public Use
  Company Number: None

PATIENT
  Age: 53 Year
  Sex: Female
  Weight: 49.5 kg

DRUGS (11)
  1. PROBIOTICS [Concomitant]
     Active Substance: PROBIOTICS NOS
  2. CIPROFLAXIN [Suspect]
     Active Substance: CIPROFLOXACIN
     Indication: URINARY TRACT INFECTION
     Dosage: OTHER TWICE A DAY ORAL
     Route: 048
  3. ESTRADIOL. [Concomitant]
     Active Substance: ESTRADIOL
  4. VITS [Concomitant]
  5. IMMUNE MODULATORS + BUILDERS [Concomitant]
  6. MAGNESIUM [Concomitant]
     Active Substance: MAGNESIUM
  7. AMINO ACIDS [Concomitant]
     Active Substance: AMINO ACIDS
  8. EMZYMES [Concomitant]
  9. MINERALS [Concomitant]
     Active Substance: MINERALS
  10. MS CONTIN [Concomitant]
     Active Substance: MORPHINE SULFATE
  11. SYNTHROID [Concomitant]
     Active Substance: LEVOTHYROXINE SODIUM

REACTIONS (7)
  - Nervous system disorder [None]
  - Tendon disorder [None]
  - Renal disorder [None]
  - Liver disorder [None]
  - Arthropathy [None]
  - Skin disorder [None]
  - Muscle disorder [None]

NARRATIVE: CASE EVENT DATE: 20160201
